FAERS Safety Report 15675809 (Version 1)
Quarter: 2018Q4

REPORT INFORMATION
  Report Type: Report from Study
  Country: US (occurrence: US)
  Receive Date: 20181130
  Receipt Date: 20181130
  Transmission Date: 20190205
  Serious: Yes (Hospitalization, Other)
  Sender: FDA-Public Use
  Company Number: US-GILEAD-2018-0377471

PATIENT
  Age: 64 Year
  Sex: Female

DRUGS (23)
  1. AMLODIPINE [Concomitant]
     Active Substance: AMLODIPINE BESYLATE
  2. ATORVASTATIN [Concomitant]
     Active Substance: ATORVASTATIN
  3. REMODULIN [Concomitant]
     Active Substance: TREPROSTINIL
  4. AMBRISENTAN [Suspect]
     Active Substance: AMBRISENTAN
     Indication: PULMONARY ARTERIAL HYPERTENSION
     Dosage: 10 MG, QD
     Route: 065
     Dates: start: 20160118, end: 20161217
  5. AMBRISENTAN [Suspect]
     Active Substance: AMBRISENTAN
     Dosage: UNK
     Route: 065
  6. ADCIRCA [Suspect]
     Active Substance: TADALAFIL
     Indication: PRODUCT USED FOR UNKNOWN INDICATION
     Dosage: UNK
     Route: 065
  7. METOPROLOL. [Concomitant]
     Active Substance: METOPROLOL
  8. FLUTICASONE. [Concomitant]
     Active Substance: FLUTICASONE
  9. FUROSEMIDE. [Concomitant]
     Active Substance: FUROSEMIDE
  10. GLIMEPIRIDE. [Concomitant]
     Active Substance: GLIMEPIRIDE
  11. LATANOPROST. [Concomitant]
     Active Substance: LATANOPROST
  12. PREDNISONE. [Concomitant]
     Active Substance: PREDNISONE
  13. BUDESONIDE. [Concomitant]
     Active Substance: BUDESONIDE
  14. DIGITEK [Concomitant]
     Active Substance: DIGOXIN
  15. GABAPENTIN. [Concomitant]
     Active Substance: GABAPENTIN
  16. ALBUTEROL HFA [Concomitant]
     Active Substance: ALBUTEROL SULFATE
  17. FAMOTIDINE. [Concomitant]
     Active Substance: FAMOTIDINE
  18. HUMALOG [Concomitant]
     Active Substance: INSULIN LISPRO
  19. IRON [Concomitant]
     Active Substance: IRON
  20. FENOFIBRATE. [Concomitant]
     Active Substance: FENOFIBRATE
  21. LORATADINE. [Concomitant]
     Active Substance: LORATADINE
  22. METOLAZONE. [Concomitant]
     Active Substance: METOLAZONE
  23. PANTOPRAZOLE [Concomitant]
     Active Substance: PANTOPRAZOLE

REACTIONS (3)
  - Nasal congestion [Unknown]
  - Atrial fibrillation [Unknown]
  - Dyspnoea [Unknown]

NARRATIVE: CASE EVENT DATE: 201804
